FAERS Safety Report 5151603-0 (Version None)
Quarter: 2006Q4

REPORT INFORMATION
  Report Type: 
  Country: None (occurrence: None)
  Receive Date: 20061115
  Receipt Date: 20060306
  Transmission Date: 20070319
  Serious: No
  Sender: FDA-Public Use
  Company Number: US-BRISTOL-MYERS SQUIBB COMPANY-13304860

PATIENT
  Age: 51 Year
  Sex: Male
  Weight: 86 kg

DRUGS (5)
  1. SUSTIVA [Suspect]
     Dosage: THERAPY: ^A FEW MONTHS AGO^
     Route: 048
  2. EPIVIR [Concomitant]
  3. NORVIR [Concomitant]
  4. METHADONE HCL [Concomitant]
  5. TRYPTOPHAN [Concomitant]

REACTIONS (1)
  - RASH [None]
